FAERS Safety Report 7057187-4 (Version None)
Quarter: 2010Q4

REPORT INFORMATION
  Report Type: 
  Country: None (occurrence: None)
  Receive Date: 20101022
  Receipt Date: 20101018
  Transmission Date: 20110411
  Serious: Yes (Other)
  Sender: FDA-Public Use
  Company Number: US-SANOFI-AVENTIS-2010SA055715

PATIENT
  Age: 63 Year
  Sex: Male

DRUGS (6)
  1. JEVTANA KIT [Suspect]
     Indication: PROSTATE CANCER
     Route: 041
     Dates: start: 20100819, end: 20100819
  2. JEVTANA KIT [Suspect]
     Route: 041
     Dates: start: 20100909, end: 20100909
  3. ALOXI [Concomitant]
     Indication: PREMEDICATION
     Dates: start: 20100909
  4. DIPHENHYDRAMINE HYDROCHLORIDE [Concomitant]
     Indication: PREMEDICATION
     Dates: start: 20100909
  5. DEXAMETHASONE [Concomitant]
     Indication: PREMEDICATION
     Dates: start: 20100909
  6. ZANTAC [Concomitant]
     Indication: PREMEDICATION
     Dates: start: 20100909

REACTIONS (8)
  - CONVULSION [None]
  - FATIGUE [None]
  - FLUSHING [None]
  - MUSCLE RIGIDITY [None]
  - MUSCLE SPASMS [None]
  - NEUROPATHY PERIPHERAL [None]
  - TREMOR [None]
  - UNRESPONSIVE TO STIMULI [None]
